FAERS Safety Report 16572993 (Version 1)
Quarter: 2019Q3

REPORT INFORMATION
  Report Type: Spontaneous
  Country: CN (occurrence: CN)
  Receive Date: 20190715
  Receipt Date: 20190715
  Transmission Date: 20191004
  Serious: Yes (Other)
  Sender: FDA-Public Use
  Company Number: CN-JNJFOC-20190710824

PATIENT

DRUGS (6)
  1. CHILDRENS MOTRIN [Suspect]
     Active Substance: IBUPROFEN
     Indication: ARTHRALGIA
  2. PARACETAMOL [Interacting]
     Active Substance: ACETAMINOPHEN
     Indication: PRODUCT USED FOR UNKNOWN INDICATION
     Route: 065
  3. CHILDRENS MOTRIN [Suspect]
     Active Substance: IBUPROFEN
     Indication: NASOPHARYNGITIS
  4. CEFRADINE [Suspect]
     Active Substance: CEPHRADINE
     Indication: PRODUCT USED FOR UNKNOWN INDICATION
     Route: 065
  5. CHILDRENS MOTRIN [Suspect]
     Active Substance: IBUPROFEN
     Indication: PYREXIA
     Route: 065
  6. PENICILLINE                        /00000901/ [Suspect]
     Active Substance: PENICILLIN G
     Indication: PRODUCT USED FOR UNKNOWN INDICATION
     Route: 065

REACTIONS (41)
  - Meningitis [Unknown]
  - Abdominal discomfort [Unknown]
  - Product use in unapproved indication [Unknown]
  - Heart rate decreased [Unknown]
  - Dyspnoea [Unknown]
  - Vision blurred [Unknown]
  - Rash [Unknown]
  - Drug eruption [Unknown]
  - Hypotension [Unknown]
  - Pain [Unknown]
  - Palpitations [Unknown]
  - Renal injury [Unknown]
  - Hyperhidrosis [Unknown]
  - Generalised oedema [Unknown]
  - Platelet count decreased [Unknown]
  - Hypertension [Unknown]
  - Vomiting [Unknown]
  - Eczema [Unknown]
  - Bronchospasm [Unknown]
  - Diarrhoea [Unknown]
  - Drug interaction [Unknown]
  - Hypoglycaemia [Unknown]
  - Insomnia [Unknown]
  - Hypoaesthesia [Unknown]
  - Pruritus [Unknown]
  - Rash maculo-papular [Unknown]
  - Metabolic acidosis [Unknown]
  - Renal impairment [Unknown]
  - Hepatocellular injury [Unknown]
  - Tinnitus [Unknown]
  - Eye disorder [Unknown]
  - Decreased appetite [Unknown]
  - Dyspepsia [Unknown]
  - Oedema peripheral [Unknown]
  - Lip oedema [Unknown]
  - Dizziness [Unknown]
  - Visual impairment [Unknown]
  - Asthma [Unknown]
  - Nausea [Unknown]
  - Urticaria [Unknown]
  - Hypersensitivity [Unknown]
